FAERS Safety Report 8474462-7 (Version None)
Quarter: 2012Q2

REPORT INFORMATION
  Report Type: 
  Country: None (occurrence: None)
  Receive Date: 20120628
  Receipt Date: 20120625
  Transmission Date: 20120825
  Serious: Yes (Other)
  Sender: FDA-Public Use
  Company Number: PHHY2010JP09512

PATIENT
  Age: 10 Year
  Sex: Male

DRUGS (4)
  1. TACROLIMUS [Concomitant]
     Indication: BONE MARROW TRANSPLANT
  2. METHYLPREDNISOLONE [Concomitant]
  3. CYCLOSPORINE [Suspect]
     Indication: BONE MARROW TRANSPLANT
  4. METHOTREXATE [Concomitant]
     Indication: BONE MARROW TRANSPLANT

REACTIONS (8)
  - CATARACT [None]
  - THROMBOCYTOPENIA [None]
  - TOXIC ENCEPHALOPATHY [None]
  - HYPERTENSION [None]
  - PANCREATITIS [None]
  - DRUG INEFFECTIVE [None]
  - GRAFT VERSUS HOST DISEASE IN SKIN [None]
  - HYPOGAMMAGLOBULINAEMIA [None]
